FAERS Safety Report 9209872 (Version 1)
Quarter: 2012Q4

REPORT INFORMATION
  Report Type: 
  Country: NO (occurrence: NO)
  Receive Date: 20120903
  Receipt Date: 20120903
  Transmission Date: 20130627
  Serious: Yes (Life-Threatening, Other)
  Sender: FDA-Public Use
  Company Number: NO-UCBSA-064619

PATIENT
  Age: 76 Year
  Sex: Male

DRUGS (8)
  1. KEPPRA [Suspect]
     Indication: STATUS EPILEPTICUS
     Route: 042
     Dates: start: 20120815, end: 20120816
  2. PARACET [Concomitant]
     Indication: PAIN
     Dosage: 1 g i.v. x  2-4
     Route: 042
  3. PARACET [Concomitant]
     Indication: PYREXIA
     Dosage: 1 g i.v. x  2-4
     Route: 042
  4. BURINEX [Concomitant]
     Indication: DIURETIC THERAPY
     Route: 042
  5. FRAGMIN [Concomitant]
     Indication: PROPHYLAXIS
     Route: 058
     Dates: start: 20120814
  6. ACICLOVIR [Concomitant]
     Indication: ENCEPHALITIS VIRAL
     Route: 042
     Dates: start: 20120815
  7. CEFTRIAXONE [Concomitant]
     Indication: BACTERIAL INFECTION
     Route: 042
     Dates: start: 20120813
  8. STESOLID [Concomitant]
     Indication: CONVULSION
     Dates: start: 201208

REACTIONS (1)
  - Ventricular tachycardia [Recovered/Resolved]
